FAERS Safety Report 6093005-9 (Version None)
Quarter: 2009Q1

REPORT INFORMATION
  Report Type: 
  Country: None (occurrence: None)
  Receive Date: 20090224
  Receipt Date: 20090212
  Transmission Date: 20090719
  Serious: Yes (Other)
  Sender: FDA-Public Use
  Company Number: 2007US002325

PATIENT
  Age: 46 Year
  Sex: Male

DRUGS (11)
  1. PROGRAF [Suspect]
     Indication: PROPHYLAXIS AGAINST TRANSPLANT REJECTION
     Dosage: 1 MG, BID, ORAL
     Route: 048
  2. MYCOPHENOLATE MOFETIL [Suspect]
     Indication: RENAL TRANSPLANT
     Dosage: 500 MG, BID, ORAL
     Route: 048
     Dates: start: 20061024
  3. PREDNISONE TAB [Suspect]
     Indication: RENAL TRANSPLANT
     Dosage: 7.5 MG, ORAL
     Route: 048
     Dates: start: 20070515
  4. TOPROL-XL [Concomitant]
  5. GEMFIBROZIL [Concomitant]
  6. LIPITOR [Concomitant]
  7. NEXIUM [Concomitant]
  8. BACTRIM [Concomitant]
  9. MAGNESIUM OXIDE (MAGNESIUM OXIDE) [Concomitant]
  10. HUMALOG [Concomitant]
  11. LANTUS [Concomitant]

REACTIONS (1)
  - OSTEONECROSIS [None]
